FAERS Safety Report 7945689-5 (Version None)
Quarter: 2011Q4

REPORT INFORMATION
  Report Type: 
  Country: None (occurrence: None)
  Receive Date: 20111129
  Receipt Date: 20111128
  Transmission Date: 20120403
  Serious: Yes (Disabling)
  Sender: FDA-Public Use
  Company Number: US-PFIZER INC-2011290091

PATIENT
  Sex: Male
  Weight: 100 kg

DRUGS (7)
  1. PREDNISONE [Concomitant]
     Dosage: UNK
  2. CARVEDILOL [Concomitant]
     Indication: HYPERTENSION
     Dosage: UNK
  3. GLYBURIDE [Concomitant]
     Dosage: UNK
  4. LIPITOR [Suspect]
     Dosage: UNK
     Route: 048
  5. LIPITOR [Suspect]
     Indication: BLOOD CHOLESTEROL INCREASED
     Dosage: 40 MG, 1X/DAY
     Route: 048
  6. EFFIENT [Concomitant]
     Dosage: UNK
  7. MYFORTIC [Concomitant]
     Dosage: UNK

REACTIONS (3)
  - ILL-DEFINED DISORDER [None]
  - BLOOD TEST ABNORMAL [None]
  - NASOPHARYNGITIS [None]
